FAERS Safety Report 25537287 (Version 3)
Quarter: 2025Q3

REPORT INFORMATION
  Report Type: Report from Study
  Country: US (occurrence: US)
  Receive Date: 20250710
  Receipt Date: 20250916
  Transmission Date: 20251020
  Serious: Yes (Other)
  Sender: BIOGEN
  Company Number: US-BIOGEN-2025BI01316229

PATIENT
  Age: 73 Year
  Sex: Female
  Weight: 71.278 kg

DRUGS (1)
  1. TYSABRI [Suspect]
     Active Substance: NATALIZUMAB
     Indication: Multiple sclerosis
     Route: 050
     Dates: start: 20250603, end: 20250603

REACTIONS (8)
  - Atrial fibrillation [Unknown]
  - Skin wound [Unknown]
  - Cutaneous vasculitis [Unknown]
  - Mouth ulceration [Unknown]
  - Blood pressure increased [Unknown]
  - Arthritis bacterial [Not Recovered/Not Resolved]
  - Urinary tract infection [Unknown]
  - Rash [Not Recovered/Not Resolved]

NARRATIVE: CASE EVENT DATE: 20250601
